FAERS Safety Report 16755060 (Version 3)
Quarter: 2019Q3

REPORT INFORMATION
  Report Type: Spontaneous
  Country: FI (occurrence: FI)
  Receive Date: 20190829
  Receipt Date: 20190926
  Transmission Date: 20191005
  Serious: Yes (Other)
  Sender: FDA-Public Use
  Company Number: FI-009507513-1908FIN009755

PATIENT
  Age: 18 Year
  Sex: Female

DRUGS (2)
  1. AERINAZE [Suspect]
     Active Substance: DESLORATADINE\PSEUDOEPHEDRINE
     Indication: PRODUCT USED FOR UNKNOWN INDICATION
     Dosage: 2.5/120 MG DELAYED RELEASE
     Route: 048
  2. HORMONAL CONTRACEPTIVES (UNSPECIFIED) [Concomitant]
     Active Substance: UNSPECIFIED INGREDIENT
     Dosage: UNK
     Route: 048

REACTIONS (5)
  - Hyperhidrosis [Recovered/Resolved]
  - Wrong technique in product usage process [Unknown]
  - Product physical issue [Unknown]
  - Vertigo [Recovered/Resolved]
  - Syncope [Recovered/Resolved]

NARRATIVE: CASE EVENT DATE: 20190821
